FAERS Safety Report 14294285 (Version 1)
Quarter: 2017Q4

REPORT INFORMATION
  Report Type: Spontaneous
  Country: US (occurrence: US)
  Receive Date: 20171217
  Receipt Date: 20171217
  Transmission Date: 20180321
  Serious: No
  Sender: FDA-Public Use
  Company Number: US-ELI_LILLY_AND_COMPANY-US201712006246

PATIENT
  Age: 70 Year
  Sex: Male

DRUGS (2)
  1. HUMULIN R U-500 KWIKPEN [Suspect]
     Active Substance: INSULIN HUMAN
     Indication: TYPE 2 DIABETES MELLITUS
     Dosage: 130 U, BID
     Dates: start: 201710
  2. HUMULIN R U-500 KWIKPEN [Suspect]
     Active Substance: INSULIN HUMAN
     Indication: DIABETES MELLITUS INADEQUATE CONTROL

REACTIONS (1)
  - Blood glucose increased [Not Recovered/Not Resolved]

NARRATIVE: CASE EVENT DATE: 20171212
